FAERS Safety Report 7691007-X (Version None)
Quarter: 2011Q3

REPORT INFORMATION
  Report Type: 
  Country: None (occurrence: None)
  Receive Date: 20110818
  Receipt Date: 20110812
  Transmission Date: 20111222
  Serious: Yes (Other)
  Sender: FDA-Public Use
  Company Number: AR-PFIZER INC-2011183353

PATIENT
  Age: 54 Year
  Sex: Male
  Weight: 104 kg

DRUGS (5)
  1. LEVOTHYROXINE [Concomitant]
     Route: 048
  2. HYDROCORTISONE [Concomitant]
     Route: 048
  3. GENOTROPIN [Suspect]
     Indication: GROWTH HORMONE DEFICIENCY
     Dosage: 0.3 MG, 1X/DAY
     Route: 058
  4. DESMOPRESSIN [Concomitant]
     Route: 048
  5. TESTOSTERONE [Concomitant]
     Route: 030

REACTIONS (1)
  - MULTIPLE MYELOMA [None]
